FAERS Safety Report 8999966 (Version 3)
Quarter: 2013Q2

REPORT INFORMATION
  Report Type: Not Available
  Country: FR (occurrence: FR)
  Receive Date: 20130102
  Receipt Date: 20130426
  Transmission Date: 20140414
  Serious: Yes (Hospitalization)
  Sender: FDA-Public Use
  Company Number: FR-ASTELLAS-2012US012839

PATIENT
  Age: 68 Year
  Sex: Female
  Weight: 68 kg

DRUGS (9)
  1. AMBISOME [Suspect]
     Indication: CANDIDA INFECTION
     Dosage: UNK
     Route: 065
     Dates: start: 20121116, end: 20121129
  2. AMBISOME [Suspect]
     Dosage: UNK
     Route: 065
     Dates: start: 20121205, end: 20121217
  3. CUBICIN [Suspect]
     Indication: ANTIBIOTIC THERAPY
     Dosage: UNK
     Route: 065
     Dates: start: 20121030, end: 20121128
  4. CUBICIN [Suspect]
     Dosage: UNK
     Route: 065
     Dates: start: 20121205, end: 20121219
  5. TAZOCILLINE [Suspect]
     Indication: ANTIBIOTIC THERAPY
     Dosage: UNK
     Route: 065
     Dates: start: 20121030, end: 20121127
  6. DALACINE /00166002/ [Suspect]
     Indication: ANTIBIOTIC THERAPY
     Dosage: UNK
     Route: 065
     Dates: start: 20121101, end: 20121205
  7. DALACINE /00166002/ [Suspect]
     Dosage: UNK
     Route: 065
     Dates: start: 20130402
  8. CANCIDAS [Suspect]
     Indication: CANDIDA INFECTION
     Dosage: UNK
     Route: 065
     Dates: start: 20121109, end: 20121116
  9. OFLOCET                            /00731801/ [Concomitant]
     Indication: PRODUCT USED FOR UNKNOWN INDICATION
     Dosage: UNK
     Route: 065
     Dates: start: 20121129

REACTIONS (1)
  - Dermatitis exfoliative [Recovered/Resolved]
